FAERS Safety Report 23326224 (Version 1)
Quarter: 2023Q4

REPORT INFORMATION
  Report Type: Report from Study
  Country: AR (occurrence: AR)
  Receive Date: 20231221
  Receipt Date: 20231221
  Transmission Date: 20240109
  Serious: Yes (Hospitalization)
  Sender: FDA-Public Use
  Company Number: AR-JNJFOC-20231167166

PATIENT
  Sex: Female
  Weight: 68 kg

DRUGS (1)
  1. SIMPONI [Suspect]
     Active Substance: GOLIMUMAB
     Indication: Rheumatoid arthritis
     Route: 058
     Dates: start: 20221017

REACTIONS (7)
  - Urinary tract infection [Unknown]
  - General physical health deterioration [Unknown]
  - Fall [Unknown]
  - Dehydration [Unknown]
  - Joint injury [Unknown]
  - Nervousness [Unknown]
  - Memory impairment [Unknown]
